FAERS Safety Report 16189432 (Version 1)
Quarter: 2019Q2

REPORT INFORMATION
  Report Type: Spontaneous
  Country: US (occurrence: US)
  Receive Date: 20190411
  Receipt Date: 20190411
  Transmission Date: 20190711
  Serious: Yes (Hospitalization)
  Sender: FDA-Public Use
  Company Number: None

PATIENT
  Sex: Female

DRUGS (3)
  1. REVATIO [Suspect]
     Active Substance: SILDENAFIL CITRATE
     Indication: PULMONARY ARTERIAL HYPERTENSION
     Dosage: ?          OTHER FREQUENCY:Q6HRS;?
     Route: 048
     Dates: start: 20180615
  2. LASIX [Concomitant]
     Active Substance: FUROSEMIDE
  3. POLY-VITE [Concomitant]

REACTIONS (1)
  - Influenza [None]
